FAERS Safety Report 9412471 (Version 1)
Quarter: 2013Q3

REPORT INFORMATION
  Report Type: Spontaneous
  Country: US (occurrence: None)
  Receive Date: 20130702
  Receipt Date: 20130702
  Transmission Date: 20140515
  Serious: Yes (Hospitalization)
  Sender: FDA-Public Use
  Company Number: AUR-APL-2013-04982

PATIENT
  Age: 20 Year
  Sex: Female

DRUGS (4)
  1. ATENOLOL [Suspect]
     Indication: HYPERTENSION
  2. AMLODIPINE [Suspect]
     Indication: HYPERTENSION
  3. DOXAZOSIN (DOXAZOSIN) [Concomitant]
  4. VALSARTAN (VALSARTAN) [Concomitant]

REACTIONS (9)
  - Toxicity to various agents [None]
  - Abdominal pain [None]
  - Haemodynamic instability [None]
  - Bradycardia [None]
  - Intestinal ischaemia [None]
  - Asthenia [None]
  - Tearfulness [None]
  - Shock [None]
  - Drug clearance decreased [None]
